FAERS Safety Report 14197863 (Version 1)
Quarter: 2017Q4

REPORT INFORMATION
  Report Type: Spontaneous
  Country: NL (occurrence: NL)
  Receive Date: 20171117
  Receipt Date: 20171117
  Transmission Date: 20180321
  Serious: No
  Sender: FDA-Public Use
  Company Number: NL-LUPIN PHARMACEUTICALS INC.-2017-06045

PATIENT
  Age: 47 Year
  Sex: Male

DRUGS (4)
  1. PAROXETINE. [Suspect]
     Active Substance: PAROXETINE
     Indication: PERSISTENT DEPRESSIVE DISORDER
     Dosage: 20 MG, UNK
     Route: 065
  2. BUPROPION. [Concomitant]
     Active Substance: BUPROPION
     Indication: PRODUCT USED FOR UNKNOWN INDICATION
     Dosage: UNK
     Route: 065
  3. PAROXETINE. [Suspect]
     Active Substance: PAROXETINE
     Indication: ANXIETY
     Dosage: UNK
     Route: 065
  4. PAROXETINE. [Suspect]
     Active Substance: PAROXETINE
     Dosage: 10 MG, UNK
     Route: 065

REACTIONS (3)
  - Libido decreased [Recovering/Resolving]
  - Listless [Recovering/Resolving]
  - Paraesthesia [Unknown]
